FAERS Safety Report 20520787 (Version 3)
Quarter: 2022Q1

REPORT INFORMATION
  Report Type: Spontaneous
  Country: FR (occurrence: None)
  Receive Date: 20220225
  Receipt Date: 20220316
  Transmission Date: 20220423
  Serious: Yes (Life-Threatening, Hospitalization, Other)
  Sender: FDA-Public Use
  Company Number: 2022A079500

PATIENT
  Age: 73 Year
  Sex: Male
  Weight: 70 kg

DRUGS (8)
  1. TICAGRELOR [Suspect]
     Active Substance: TICAGRELOR
     Indication: Acute coronary syndrome
     Dosage: UNKNOWN
     Route: 048
     Dates: start: 20220126, end: 20220126
  2. HEPARIN CALCIUM [Suspect]
     Active Substance: HEPARIN CALCIUM
     Indication: Acute coronary syndrome
     Dosage: UNKNOWN
     Route: 042
     Dates: start: 20220126, end: 20220126
  3. HEPARIN CALCIUM [Suspect]
     Active Substance: HEPARIN CALCIUM
     Indication: Stent placement
     Dosage: UNKNOWN
     Route: 042
     Dates: start: 20220126, end: 20220126
  4. TIROFIBAN HYDROCHLORIDE [Suspect]
     Active Substance: TIROFIBAN HYDROCHLORIDE
     Indication: Acute coronary syndrome
     Dosage: 7.0ML ONCE/SINGLE ADMINISTRATION
     Route: 042
     Dates: start: 20220126, end: 20220126
  5. ASPIRIN [Suspect]
     Active Substance: ASPIRIN
     Indication: Acute coronary syndrome
     Dosage: UNKNOWN
     Route: 065
  6. ASPIRIN [Suspect]
     Active Substance: ASPIRIN
     Indication: Stent placement
     Dosage: UNKNOWN
     Route: 065
  7. ASPIRIN [Suspect]
     Active Substance: ASPIRIN
     Indication: Acute coronary syndrome
     Dosage: UNKNOWN
     Route: 065
     Dates: start: 20220126, end: 20220126
  8. ASPIRIN [Suspect]
     Active Substance: ASPIRIN
     Indication: Stent placement
     Dosage: UNKNOWN
     Route: 065
     Dates: start: 20220126, end: 20220126

REACTIONS (2)
  - Thrombocytopenia [Recovered/Resolved]
  - Administration site haematoma [Recovered/Resolved]

NARRATIVE: CASE EVENT DATE: 20220126
